FAERS Safety Report 8731441 (Version 4)
Quarter: 2012Q4

REPORT INFORMATION
  Report Type: 
  Country: US (occurrence: US)
  Receive Date: 20120820
  Receipt Date: 20121219
  Transmission Date: 20130627
  Serious: Yes (Hospitalization)
  Sender: FDA-Public Use
  Company Number: US-BAYER-2012-082783

PATIENT
  Age: 37 Year
  Sex: Female
  Weight: 136.5 kg

DRUGS (33)
  1. YAZ [Suspect]
     Indication: CONTRACEPTION
     Dosage: UNK
     Dates: start: 2002, end: 2010
  2. YAZ [Suspect]
     Indication: ACNE
  3. YASMIN [Suspect]
     Indication: CONTRACEPTION
     Dosage: UNK
     Dates: start: 200201, end: 2010
  4. YASMIN [Suspect]
     Indication: ACNE
  5. OCELLA [Suspect]
     Indication: CONTRACEPTION
     Dosage: UNK
     Dates: start: 2002, end: 2010
  6. OCELLA [Suspect]
     Indication: ACNE
  7. GIANVI [Suspect]
     Indication: CONTRACEPTION
     Dosage: UNK
     Dates: start: 20110816, end: 20111017
  8. GIANVI [Suspect]
     Indication: ACNE
  9. NARCAN [Concomitant]
  10. OXYCONTIN [Concomitant]
     Indication: URINE DRUG SCREEN POSITIVE
  11. KLONOPIN [Concomitant]
     Indication: URINE DRUG SCREEN POSITIVE
  12. NEURONTIN [Concomitant]
     Dosage: 600 mg, UNK
     Route: 048
     Dates: start: 2009
  13. LISINOPRIL/HYDROCHLOROTHIAZIDE [Concomitant]
     Route: 048
  14. DICLOFENAC [Concomitant]
     Dosage: 75 mg, UNK
     Route: 048
     Dates: start: 20110918
  15. FLEXERIL [Concomitant]
     Dosage: 10 mg, UNK
  16. TRAZODONE [Concomitant]
  17. TETRAHYDROCANNABINOL [Concomitant]
  18. LISINOPRIL [Concomitant]
     Dosage: UNK
     Route: 048
     Dates: start: 2008
  19. LIPITOR [Concomitant]
     Dosage: 10 mg, UNK
     Route: 048
     Dates: start: 2008
  20. CARVEDILOL [Concomitant]
     Dosage: 3.125 mg, UNK
     Route: 048
  21. TIZANIDINE [Concomitant]
     Dosage: 4 mg, UNK
     Route: 048
  22. FUROSEMIDE [Concomitant]
     Dosage: 40 mg, UNK
     Route: 048
     Dates: start: 20110918
  23. VITAMIN D [Concomitant]
     Dosage: 50,000 units ; UNK
     Route: 048
     Dates: start: 20110918
  24. CITALOPRAM [Concomitant]
     Dosage: 40 mg, UNK
     Route: 048
     Dates: start: 20110918
  25. AMITRIPTYLINE [Concomitant]
  26. CRESTOR [Concomitant]
  27. HYDROCODONE W/ACETAMINOPHEN [Concomitant]
     Route: 048
  28. MORPHINE [Concomitant]
     Indication: HEADACHE
     Dosage: UNK, PRN
     Route: 042
  29. ATIVAN [Concomitant]
     Indication: ANXIETY
     Dosage: 1 to 2 mg every 6 hours
  30. ATIVAN [Concomitant]
     Indication: AGITATION
  31. CYCLOBENZAPRINE [Concomitant]
  32. PEPCID [Concomitant]
  33. GABAPENTIN [Concomitant]

REACTIONS (11)
  - Embolic stroke [None]
  - Injury [None]
  - Pain [None]
  - Depression [None]
  - Emotional distress [None]
  - Fear of death [None]
  - Aphasia [None]
  - Nervousness [None]
  - Aphasia [None]
  - Visual impairment [None]
  - General physical health deterioration [None]
